FAERS Safety Report 16926333 (Version 1)
Quarter: 2019Q4

REPORT INFORMATION
  Report Type: Spontaneous
  Country: IN (occurrence: IN)
  Receive Date: 20191016
  Receipt Date: 20191016
  Transmission Date: 20200122
  Serious: Yes (Other)
  Sender: FDA-Public Use
  Company Number: IN-NOVOPROD-685699

PATIENT
  Age: 30 Year
  Sex: Female

DRUGS (1)
  1. NOVOSEVEN [Suspect]
     Active Substance: COAGULATION FACTOR VIIA RECOMBINANT HUMAN
     Indication: CONGENITAL THROMBOCYTE DISORDER
     Dosage: 4 MG, QD
     Route: 065

REACTIONS (2)
  - Stillbirth [Unknown]
  - Maternal exposure during pregnancy [Recovered/Resolved]
